FAERS Safety Report 8576164-5 (Version None)
Quarter: 2012Q3

REPORT INFORMATION
  Report Type: 
  Country: None (occurrence: None)
  Receive Date: 20120715
  Receipt Date: 20120720
  Transmission Date: 20120928
  Serious: Yes (Hospitalization)
  Sender: FDA-Public Use
  Company Number: ACO_30747_2012

PATIENT
  Age: 65 Year
  Sex: Female

DRUGS (6)
  1. AVONEX [Concomitant]
  2. PREMARIN [Concomitant]
  3. CITALOPRAM HYDROBROMIDE [Concomitant]
  4. OXYBUTYNIN [Concomitant]
  5. BACLOFEN [Concomitant]
  6. AMPYRA [Suspect]
     Indication: GAIT DISTURBANCE
     Dosage: 10 MG, BID, ORAL
     Route: 048
     Dates: start: 20120319

REACTIONS (1)
  - BRAIN NEOPLASM BENIGN [None]
